FAERS Safety Report 18997863 (Version 4)
Quarter: 2021Q3

REPORT INFORMATION
  Report Type: Report from Study
  Country: FR (occurrence: FR)
  Receive Date: 20210311
  Receipt Date: 20210928
  Transmission Date: 20211014
  Serious: Yes (Death, Hospitalization, Other)
  Sender: FDA-Public Use
  Company Number: FR-INCYTE CORPORATION-2020IN013179

PATIENT

DRUGS (5)
  1. THIAZIDE [Concomitant]
     Active Substance: UNSPECIFIED INGREDIENT
     Indication: PRODUCT USED FOR UNKNOWN INDICATION
     Dosage: UNK
     Route: 065
  2. JAKAVI [Suspect]
     Active Substance: RUXOLITINIB
     Indication: MYELOFIBROSIS
     Dosage: 20 MG, DAILY
     Route: 048
     Dates: start: 20200203, end: 20200921
  3. JAKAVI [Suspect]
     Active Substance: RUXOLITINIB
     Dosage: 10 MG, DAILY
     Route: 048
     Dates: start: 20200921, end: 2020
  4. FUROSEMIDE;POTASSIUM CHLORIDE [Concomitant]
     Active Substance: FUROSEMIDE\POTASSIUM CHLORIDE
     Indication: PRODUCT USED FOR UNKNOWN INDICATION
     Dosage: UNK
     Route: 065
  5. JAKAVI [Suspect]
     Active Substance: RUXOLITINIB
     Dosage: 5 MG, DAILY
     Route: 048
     Dates: start: 2020, end: 20201208

REACTIONS (14)
  - Fatigue [Unknown]
  - Nausea [Unknown]
  - Anaemia [Not Recovered/Not Resolved]
  - Hypoglycaemia [Fatal]
  - Inappropriate schedule of product administration [Unknown]
  - Renal failure [Fatal]
  - Hepatic failure [Fatal]
  - Dehydration [Fatal]
  - Diarrhoea [Fatal]
  - Jaundice [Unknown]
  - Yersinia infection [Not Recovered/Not Resolved]
  - General physical health deterioration [Fatal]
  - Psoriasis [Recovering/Resolving]
  - Vomiting [Fatal]

NARRATIVE: CASE EVENT DATE: 20200221
